FAERS Safety Report 4973874-3 (Version None)
Quarter: 2006Q2

REPORT INFORMATION
  Report Type: 
  Country: None (occurrence: None)
  Receive Date: 20060417
  Receipt Date: 20060406
  Transmission Date: 20061013
  Serious: Yes (Hospitalization)
  Sender: FDA-Public Use
  Company Number: US-JNJFOC-20060401578

PATIENT
  Sex: Female
  Weight: 59.88 kg

DRUGS (4)
  1. REMICADE [Suspect]
     Indication: RHEUMATOID ARTHRITIS
     Route: 042
  2. IMURAN [Concomitant]
  3. FOSAMAX [Concomitant]
  4. CALCIUM GLUCONATE [Concomitant]

REACTIONS (2)
  - ATRIOVENTRICULAR BLOCK SECOND DEGREE [None]
  - SINUS ARRHYTHMIA [None]
